FAERS Safety Report 8483983-2 (Version None)
Quarter: 2012Q3

REPORT INFORMATION
  Report Type: 
  Country: None (occurrence: None)
  Receive Date: 20120703
  Receipt Date: 20120628
  Transmission Date: 20120928
  Serious: No
  Sender: FDA-Public Use
  Company Number: US-PFIZER INC-2012156556

PATIENT
  Sex: Female
  Weight: 70.748 kg

DRUGS (2)
  1. LYRICA [Suspect]
     Indication: NERVE INJURY
     Dosage: 75 MG, 2X/DAY
     Route: 048
     Dates: start: 20120601, end: 20120601
  2. NORCO [Concomitant]
     Indication: PROCEDURAL PAIN
     Dosage: 7.5/325, AS NEEDED

REACTIONS (2)
  - LETHARGY [None]
  - FEELING ABNORMAL [None]
